FAERS Safety Report 9094000 (Version 1)
Quarter: 2013Q1

REPORT INFORMATION
  Report Type: Spontaneous
  Country: US (occurrence: None)
  Receive Date: 20130122
  Receipt Date: 20130122
  Transmission Date: 20140127
  Serious: No
  Sender: FDA-Public Use
  Company Number: 2013-00020

PATIENT
  Age: 56 Year
  Sex: Female
  Weight: 86.18 kg

DRUGS (5)
  1. ZICAM COLD REMEDY [Suspect]
     Indication: OROPHARYNGEAL PAIN
     Dosage: 1 CHEWABLETABLET EVERY 3 HOURS
     Dates: start: 20130111, end: 20130113
  2. DIOVAN [Concomitant]
  3. CALCIUM [Concomitant]
  4. VITAMIN D3/CHOLECALCIFEROL [Concomitant]
  5. MVI [Concomitant]

REACTIONS (1)
  - Ageusia [None]
